FAERS Safety Report 9587578 (Version 2)
Quarter: 2014Q2

REPORT INFORMATION
  Report Type: Report from Study
  Country: GB (occurrence: GB)
  Receive Date: 20131003
  Receipt Date: 20140409
  Transmission Date: 20141212
  Serious: No
  Sender: FDA-Public Use
  Company Number: GB-US-EMD SERONO, INC.-7240328

PATIENT
  Sex: Male

DRUGS (2)
  1. SAIZEN [Suspect]
     Indication: SMALL FOR DATES BABY
     Route: 058
     Dates: start: 20130923, end: 20130924
  2. SAIZEN [Suspect]
     Route: 058

REACTIONS (1)
  - Migraine [Unknown]
